FAERS Safety Report 5115605-2 (Version None)
Quarter: 2006Q3

REPORT INFORMATION
  Report Type: 
  Country: None (occurrence: None)
  Receive Date: 20060925
  Receipt Date: 20060915
  Transmission Date: 20061208
  Serious: Yes (Other)
  Sender: FDA-Public Use
  Company Number: 2006111795

PATIENT
  Sex: Female
  Weight: 50.8029 kg

DRUGS (4)
  1. BEN-GAY ULTRA (MENTHOL, CAMPHOR, METHYL SALICYLATE) [Suspect]
     Indication: NECK PAIN
     Dosage: QUARTER SIZED AMOUTH ALMOST DAILY, TOPICAL
     Route: 061
     Dates: start: 20040101, end: 20060915
  2. VITAMINS (VITAMINS) [Concomitant]
  3. ASCORBIC ACID [Concomitant]
  4. PHYTONADIONE [Concomitant]

REACTIONS (2)
  - CONTUSION [None]
  - HAEMOPHILIA [None]
